FAERS Safety Report 7323408-3 (Version None)
Quarter: 2011Q1

REPORT INFORMATION
  Report Type: 
  Country: None (occurrence: None)
  Receive Date: 20110301
  Receipt Date: 20110223
  Transmission Date: 20110831
  Serious: Yes (Hospitalization)
  Sender: FDA-Public Use
  Company Number: NL-PFIZER INC-2007048854

PATIENT
  Age: 73 Year
  Sex: Male
  Weight: 69 kg

DRUGS (5)
  1. TOLBUTAMIDE [Concomitant]
  2. DURATEARS [Concomitant]
  3. ATENOLOL [Concomitant]
  4. NORVASC [Concomitant]
  5. SUNITINIB MALATE [Suspect]
     Indication: METASTATIC RENAL CELL CARCINOMA
     Dosage: 37.5 MG
     Route: 048
     Dates: start: 20070515, end: 20070612

REACTIONS (8)
  - ANXIETY [None]
  - BLOOD PRESSURE SYSTOLIC INCREASED [None]
  - APHASIA [None]
  - CEREBRAL ISCHAEMIA [None]
  - PSYCHOTIC DISORDER [None]
  - COGNITIVE DISORDER [None]
  - NUCLEAR MAGNETIC RESONANCE IMAGING BRAIN ABNORMAL [None]
  - CONFUSIONAL STATE [None]
